FAERS Safety Report 6531552-3 (Version None)
Quarter: 2010Q1

REPORT INFORMATION
  Report Type: 
  Country: None (occurrence: None)
  Receive Date: 20100108
  Receipt Date: 20100105
  Transmission Date: 20100710
  Serious: Yes (Death, Hospitalization)
  Sender: FDA-Public Use
  Company Number: US-ASTRAZENECA-2010SE00522

PATIENT
  Age: 21 Year
  Sex: Male

DRUGS (6)
  1. QUETIAPINE [Suspect]
     Route: 048
  2. FLUOXETINE [Suspect]
     Route: 048
  3. BUPROPION HCL [Suspect]
     Route: 048
  4. OXCABAZEPINE [Suspect]
     Route: 048
  5. METHYLPHENIDATE HCL [Suspect]
     Route: 048
  6. ETHANOL [Suspect]
     Route: 048

REACTIONS (4)
  - CARDIAC ARREST [None]
  - COMPLETED SUICIDE [None]
  - DRUG TOXICITY [None]
  - RESPIRATORY ARREST [None]
